FAERS Safety Report 16950158 (Version 1)
Quarter: 2019Q4

REPORT INFORMATION
  Report Type: Spontaneous
  Country: US (occurrence: US)
  Receive Date: 20191023
  Receipt Date: 20191023
  Transmission Date: 20200122
  Serious: Yes (Hospitalization)
  Sender: FDA-Public Use
  Company Number: US-HIKMA PHARMACEUTICALS USA INC.-US-H14001-19-05402

PATIENT
  Age: 67 Year
  Sex: Male

DRUGS (3)
  1. LACTULOSE. [Concomitant]
     Active Substance: LACTULOSE
     Indication: ENCEPHALOPATHY
     Route: 065
  2. NADOLOL. [Suspect]
     Active Substance: NADOLOL
     Indication: VARICES OESOPHAGEAL
     Route: 065
  3. DILTIAZEM. [Suspect]
     Active Substance: DILTIAZEM
     Indication: ATRIAL FIBRILLATION
     Route: 065

REACTIONS (6)
  - Hyperkalaemia [Unknown]
  - Renal tubular necrosis [Unknown]
  - Shock [Recovering/Resolving]
  - Bradycardia [Recovering/Resolving]
  - Cardioactive drug level increased [Unknown]
  - Renal failure [Unknown]
